FAERS Safety Report 6974898-7 (Version None)
Quarter: 2010Q3

REPORT INFORMATION
  Report Type: 
  Country: None (occurrence: None)
  Receive Date: 20100909
  Receipt Date: 20090521
  Transmission Date: 20110219
  Serious: No
  Sender: FDA-Public Use
  Company Number: US-WYE-H07645309

PATIENT
  Sex: Female
  Weight: 65.83 kg

DRUGS (9)
  1. PRISTIQ [Suspect]
     Indication: DEPRESSION
     Route: 048
     Dates: start: 20090107, end: 20090519
  2. PRISTIQ [Suspect]
     Route: 048
     Dates: start: 20090520
  3. PREMARIN [Concomitant]
  4. ACTONEL [Concomitant]
  5. ZOCOR [Concomitant]
  6. HYZAAR [Concomitant]
  7. POTASSIUM CHLORIDE [Concomitant]
  8. WELLBUTRIN [Concomitant]
  9. VALIUM [Concomitant]

REACTIONS (4)
  - DRUG INEFFECTIVE [None]
  - INSOMNIA [None]
  - MIDDLE INSOMNIA [None]
  - SOMNOLENCE [None]
